FAERS Safety Report 10986092 (Version 1)
Quarter: 2015Q2

REPORT INFORMATION
  Report Type: Spontaneous
  Country: US (occurrence: None)
  Receive Date: 20150403
  Receipt Date: 20150403
  Transmission Date: 20150821
  Serious: No
  Sender: FDA-Public Use
  Company Number: None

PATIENT
  Age: 55 Year
  Sex: Male
  Weight: 92.99 kg

DRUGS (9)
  1. ASPIRIN. [Concomitant]
     Active Substance: ASPIRIN
  2. ABILIFY [Concomitant]
     Active Substance: ARIPIPRAZOLE
  3. DHA [Concomitant]
     Active Substance: DIETARY SUPPLEMENT
  4. PLAVIX GENERIC BRAND [Suspect]
     Active Substance: CLOPIDOGREL BISULFATE
     Indication: BLUE TOE SYNDROME
     Route: 048
     Dates: start: 20150203, end: 20150402
  5. IBUPROFEN. [Concomitant]
     Active Substance: IBUPROFEN
  6. PROVIGIL [Concomitant]
     Active Substance: MODAFINIL
  7. EFFEXOR [Concomitant]
     Active Substance: VENLAFAXINE HYDROCHLORIDE
  8. FLAXSEED [Concomitant]
     Active Substance: FLAX SEED
  9. MULTI VITAMIN [Concomitant]
     Active Substance: VITAMINS

REACTIONS (1)
  - Fatigue [None]

NARRATIVE: CASE EVENT DATE: 20150402
